FAERS Safety Report 9893391 (Version 2)
Quarter: 2014Q1

REPORT INFORMATION
  Report Type: Report from Study
  Country: JP (occurrence: JP)
  Receive Date: 20140213
  Receipt Date: 20140213
  Transmission Date: 20141002
  Serious: Yes (Other)
  Sender: FDA-Public Use
  Company Number: JP-009507513-1401JPN011579

PATIENT
  Age: 64 Year
  Sex: Male

DRUGS (59)
  1. FOSAPREPITANT DIMEGLUMINE [Suspect]
     Indication: PROPHYLAXIS OF NAUSEA AND VOMITING
     Dosage: 150 MG, ONCE
     Route: 041
     Dates: start: 20130904, end: 20130904
  2. FOSAPREPITANT DIMEGLUMINE [Suspect]
     Dosage: 150 MG, QD
     Route: 041
     Dates: start: 20131002, end: 20131002
  3. FOSAPREPITANT DIMEGLUMINE [Suspect]
     Dosage: 150 MG, ONCE
     Route: 041
     Dates: start: 20131106, end: 20131106
  4. FOSAPREPITANT DIMEGLUMINE [Suspect]
     Dosage: 150 MG, ONCE
     Route: 041
     Dates: start: 20131203, end: 20131203
  5. NEUTROGIN [Suspect]
     Dosage: 100 MICROGRAM DAILY
     Route: 041
     Dates: start: 20130917, end: 20130920
  6. CISPLATIN [Concomitant]
     Dosage: UNK
     Dates: start: 20130904, end: 20130904
  7. CISPLATIN [Concomitant]
     Dosage: UNK
     Dates: start: 20131002, end: 20131002
  8. CISPLATIN [Concomitant]
     Dosage: UNK
     Dates: start: 20131106, end: 20131106
  9. CISPLATIN [Concomitant]
     Dosage: UNK
     Dates: start: 20131203, end: 20131203
  10. NAVELBINE [Concomitant]
     Dosage: UNK
     Dates: start: 20130904, end: 20130904
  11. NAVELBINE [Concomitant]
     Dosage: UNK
     Dates: start: 20131002, end: 20131002
  12. NAVELBINE [Concomitant]
     Dosage: UNK
     Dates: start: 20131106, end: 20131106
  13. NAVELBINE [Concomitant]
     Dosage: UNK
     Dates: start: 20131203, end: 20131203
  14. ALOXI [Concomitant]
     Dosage: UNK
     Dates: start: 20130904, end: 20130904
  15. ALOXI [Concomitant]
     Dosage: UNK
     Dates: start: 20131002, end: 20131002
  16. ALOXI [Concomitant]
     Dosage: UNK
     Dates: start: 20131106, end: 20131106
  17. ALOXI [Concomitant]
     Dosage: UNK
     Dates: start: 20131203, end: 20131203
  18. DECADRON PHOSPHATE INJECTION [Concomitant]
     Dosage: UNK
     Dates: start: 20130904, end: 20130904
  19. DECADRON PHOSPHATE INJECTION [Concomitant]
     Dosage: UNK
     Dates: start: 20131002, end: 20131002
  20. DECADRON PHOSPHATE INJECTION [Concomitant]
     Dosage: UNK
     Dates: start: 20131106, end: 20131106
  21. DECADRON PHOSPHATE INJECTION [Concomitant]
     Dosage: UNK
     Dates: start: 20131203, end: 20131203
  22. DECADRON PHOSPHATE INJECTION [Concomitant]
     Dosage: UNK
     Dates: start: 20130905, end: 20130906
  23. DECADRON PHOSPHATE INJECTION [Concomitant]
     Dosage: UNK
     Dates: start: 20131003, end: 20131004
  24. DECADRON PHOSPHATE INJECTION [Concomitant]
     Dosage: UNK
     Dates: start: 20131107, end: 20131108
  25. DECADRON PHOSPHATE INJECTION [Concomitant]
     Dosage: UNK
     Dates: start: 20131204, end: 20131205
  26. PRIMPERAN [Concomitant]
     Dosage: UNK
     Dates: start: 20130905, end: 20130906
  27. PRIMPERAN [Concomitant]
     Dosage: UNK
     Dates: start: 20131003, end: 20131004
  28. PRIMPERAN [Concomitant]
     Dosage: UNK
     Dates: start: 20131107, end: 20131108
  29. PRIMPERAN [Concomitant]
     Dosage: UNK
     Dates: start: 20131204, end: 20131205
  30. MAGNESIUM SULFATE [Concomitant]
     Dosage: UNK
     Dates: start: 20130904, end: 20130904
  31. MAGNESIUM SULFATE [Concomitant]
     Dosage: UNK
     Dates: start: 20131002, end: 20131002
  32. MAGNESIUM SULFATE [Concomitant]
     Dosage: UNK
     Dates: start: 20131106, end: 20131106
  33. MAGNESIUM SULFATE [Concomitant]
     Dosage: UNK
     Dates: start: 20131203, end: 20131203
  34. MANNITOL [Concomitant]
     Dosage: UNK
     Dates: start: 20130904, end: 20130904
  35. MANNITOL [Concomitant]
     Dosage: UNK
     Dates: start: 20131002, end: 20131002
  36. MANNITOL [Concomitant]
     Dosage: UNK
     Dates: start: 20131106, end: 20131106
  37. MANNITOL [Concomitant]
     Dosage: UNK
     Dates: start: 20131203, end: 20131203
  38. CRAVIT [Concomitant]
     Dosage: UNK
     Dates: start: 20130904, end: 20130907
  39. PURSENNID (SENNOSIDES) [Concomitant]
     Dosage: UNK
     Dates: start: 20130906, end: 20130906
  40. PANTOSIN [Concomitant]
     Dosage: UNK
     Dates: start: 20130907, end: 20130908
  41. PANTOSIN [Concomitant]
     Dosage: UNK
     Dates: start: 20131006, end: 20131006
  42. PANTOSIN [Concomitant]
     Dosage: UNK
     Dates: start: 20131110, end: 20131110
  43. PANTOSIN [Concomitant]
     Dosage: UNK
     Dates: start: 20131203, end: 20131203
  44. PANTOSIN [Concomitant]
     Dosage: UNK
     Dates: start: 20131002, end: 20131002
  45. PANTOSIN [Concomitant]
     Dosage: UNK
     Dates: start: 20131204, end: 20131204
  46. PANTOSIN [Concomitant]
     Dosage: UNK
     Dates: start: 20131003, end: 20131004
  47. PANTOSIN [Concomitant]
     Dosage: UNK
     Dates: start: 20131005, end: 20131005
  48. PANTOSIN [Concomitant]
     Dosage: UNK
     Dates: start: 20131106, end: 20131109
  49. PANTOSIN [Concomitant]
     Dosage: UNK
     Dates: start: 20131205, end: 20131206
  50. MAGLAX (MAGNESIUM OXIDE) [Concomitant]
     Dosage: UNK
     Dates: start: 20130907, end: 20130908
  51. MAGLAX (MAGNESIUM OXIDE) [Concomitant]
     Dosage: UNK
     Dates: start: 20131006, end: 20131006
  52. MAGLAX (MAGNESIUM OXIDE) [Concomitant]
     Dosage: UNK
     Dates: start: 20131110, end: 20131110
  53. MAGLAX (MAGNESIUM OXIDE) [Concomitant]
     Dosage: UNK
     Dates: start: 20131203, end: 20131203
  54. MAGLAX (MAGNESIUM OXIDE) [Concomitant]
     Dosage: UNK
     Dates: start: 20131002, end: 20131002
  55. MAGLAX (MAGNESIUM OXIDE) [Concomitant]
     Dosage: UNK
     Dates: start: 20131204, end: 20131204
  56. MAGLAX (MAGNESIUM OXIDE) [Concomitant]
     Dosage: UNK
     Dates: start: 20131003, end: 20131004
  57. MAGLAX (MAGNESIUM OXIDE) [Concomitant]
     Dosage: UNK
     Dates: start: 20131005, end: 20131005
  58. MAGLAX (MAGNESIUM OXIDE) [Concomitant]
     Dosage: UNK
     Dates: start: 20131106, end: 20131109
  59. MAGLAX (MAGNESIUM OXIDE) [Concomitant]
     Dosage: UNK
     Dates: start: 20131205, end: 20131206

REACTIONS (7)
  - Agranulocytosis [Recovered/Resolved]
  - Radiation oesophagitis [Unknown]
  - Back pain [Unknown]
  - Renal impairment [Recovered/Resolved]
  - Constipation [Recovered/Resolved]
  - Decreased appetite [Recovered/Resolved]
  - White blood cell count decreased [Recovered/Resolved]
